FAERS Safety Report 8058163 (Version 6)
Quarter: 2013Q3

REPORT INFORMATION
  Report Type: Spontaneous
  Country: US (occurrence: US)
  Receive Date: 20110728
  Receipt Date: 20130802
  Transmission Date: 20140515
  Serious: Yes (Other)
  Sender: FDA-Public Use
  Company Number: US-JNJFOC-20110707166

PATIENT
  Age: 58 Year
  Sex: Male
  Weight: 69 kg

DRUGS (5)
  1. REMICADE [Suspect]
     Indication: COLITIS ULCERATIVE
     Dosage: PATIENT RECEIVED APPROXIMATELY 3 INFUSIONS
     Route: 042
     Dates: start: 20110601, end: 20110712
  2. PREDNISONE [Concomitant]
  3. DEPAKOTE [Concomitant]
  4. LIALDA [Concomitant]
  5. TYLENOL [Concomitant]
     Indication: PREMEDICATION
     Route: 065
     Dates: start: 20110712

REACTIONS (12)
  - Palpitations [Recovered/Resolved]
  - Infusion related reaction [Unknown]
  - Chest pain [Recovered/Resolved]
  - Pain [Recovered/Resolved]
  - Dyspnoea [Unknown]
  - Tachycardia [Unknown]
  - Chest pain [Unknown]
  - Hyperhidrosis [Unknown]
  - Pallor [Recovered/Resolved]
  - Headache [Recovered/Resolved]
  - Cold sweat [Recovered/Resolved]
  - Feeling cold [Recovered/Resolved]
